FAERS Safety Report 5689979-8 (Version None)
Quarter: 2008Q2

REPORT INFORMATION
  Report Type: 
  Country: None (occurrence: None)
  Receive Date: 20080401
  Receipt Date: 20070521
  Transmission Date: 20081010
  Serious: No
  Sender: FDA-Public Use
  Company Number: A0652906A

PATIENT

DRUGS (3)
  1. FLOVENT [Suspect]
     Indication: DRUG USE FOR UNKNOWN INDICATION
     Route: 055
  2. FLONASE [Suspect]
     Indication: DRUG USE FOR UNKNOWN INDICATION
     Route: 045
  3. AEROBID [Suspect]
     Indication: DRUG USE FOR UNKNOWN INDICATION
     Route: 055

REACTIONS (1)
  - INTERCEPTED DRUG DISPENSING ERROR [None]
